FAERS Safety Report 22636786 (Version 1)
Quarter: 2023Q2

REPORT INFORMATION
  Report Type: Spontaneous
  Country: GB (occurrence: GB)
  Receive Date: 20230626
  Receipt Date: 20230626
  Transmission Date: 20230721
  Serious: Yes (Disabling, Other)
  Sender: FDA-Public Use
  Company Number: None

PATIENT
  Age: 48 Year
  Sex: Male
  Weight: 104 kg

DRUGS (5)
  1. ARIPIPRAZOLE [Suspect]
     Active Substance: ARIPIPRAZOLE
     Indication: Schizophrenia
     Dates: start: 20160101
  2. COCODAMOL [Concomitant]
     Active Substance: ACETAMINOPHEN\CODEINE PHOSPHATE
     Indication: Muscle spasms
     Dates: start: 20170601
  3. TRAMADOL [Concomitant]
     Active Substance: TRAMADOL
     Indication: Muscle spasms
     Dates: start: 20170601
  4. ORPHENADRINE [Concomitant]
     Active Substance: ORPHENADRINE
  5. PROCYCLIDINE [Concomitant]
     Active Substance: PROCYCLIDINE

REACTIONS (6)
  - Medication error [Unknown]
  - Parkinsonism [Not Recovered/Not Resolved]
  - Muscle spasms [Unknown]
  - Restless legs syndrome [Unknown]
  - Insomnia [Unknown]
  - Muscular weakness [Unknown]

NARRATIVE: CASE EVENT DATE: 20170601
